FAERS Safety Report 16752014 (Version 1)
Quarter: 2019Q3

REPORT INFORMATION
  Report Type: Spontaneous
  Country: UY (occurrence: UY)
  Receive Date: 20190828
  Receipt Date: 20190828
  Transmission Date: 20191005
  Serious: Yes (Other)
  Sender: FDA-Public Use
  Company Number: PHHY2019UY198616

PATIENT
  Age: 3 Month
  Sex: Female
  Weight: 4.48 kg

DRUGS (2)
  1. PREDNISOLONE. [Suspect]
     Active Substance: PREDNISOLONE
     Indication: HAEMANGIOMA OF LIVER
     Dosage: 3 MG/KG, QD FOR 6 MONTHS WITH A SUBSEQUENT GRADUAL DECREASE IN DOSE
     Route: 048
  2. HYDROCORTISONE. [Suspect]
     Active Substance: HYDROCORTISONE
     Indication: HAEMANGIOMA OF LIVER
     Dosage: UNK
     Route: 048

REACTIONS (3)
  - Cushing^s syndrome [Unknown]
  - Product use in unapproved indication [Unknown]
  - Adrenal insufficiency [Unknown]
